FAERS Safety Report 9524992 (Version 1)
Quarter: 2013Q1

REPORT INFORMATION
  Report Type: Spontaneous
  Country: US (occurrence: None)
  Receive Date: 20130314
  Receipt Date: 20130314
  Transmission Date: 20140127
  Serious: No
  Sender: FDA-Public Use
  Company Number: 1301USA006103

PATIENT
  Age: 56 Year
  Sex: Male

DRUGS (3)
  1. PEGINTRON (PEGINTRFERON ALFA-2B) POWDER FOR INJECTION [Suspect]
     Indication: HEPATITIS C
     Dosage: REDIPEN
     Dates: start: 20130111
  2. RIBAVIRIN (RIBAVIRIN) TABLET, 200 MG [Suspect]
     Indication: HEPATITIS C
     Dosage: UNK?
     Dates: start: 20130111
  3. VICTRELIS (BOCEPREVIR) CAPSULE [Suspect]
     Indication: HEPATITIS C
     Dosage: UNK
     Dates: start: 20130208

REACTIONS (5)
  - Pyrexia [None]
  - Myalgia [None]
  - Influenza like illness [None]
  - Diarrhoea [None]
  - Fatigue [None]
